FAERS Safety Report 16818880 (Version 1)
Quarter: 2019Q3

REPORT INFORMATION
  Report Type: Spontaneous
  Country: GB (occurrence: GB)
  Receive Date: 20190917
  Receipt Date: 20190917
  Transmission Date: 20191005
  Serious: Yes (Other)
  Sender: FDA-Public Use
  Company Number: GB-MYLANLABS-2019M1086193

PATIENT
  Age: 34 Year
  Sex: Male
  Weight: 84 kg

DRUGS (4)
  1. CLARITHROMYCIN. [Suspect]
     Active Substance: CLARITHROMYCIN
     Indication: PRODUCT USED FOR UNKNOWN INDICATION
     Dosage: ONE AT 9AM AND 4PM
     Dates: start: 20190402
  2. FLUCLOXACILLIN [Concomitant]
     Active Substance: FLUCLOXACILLIN
     Dosage: 2 DOSAGE FORM
     Dates: start: 20190228, end: 20190307
  3. LEVETIRACETAM. [Concomitant]
     Active Substance: LEVETIRACETAM
     Dosage: 1 DOSAGE FORM
     Dates: start: 20190402
  4. SERTRALINE [Concomitant]
     Active Substance: SERTRALINE HYDROCHLORIDE
     Dates: start: 20190228

REACTIONS (4)
  - Nightmare [Recovered/Resolved]
  - Hallucination [Recovered/Resolved]
  - Vasodilatation [Recovering/Resolving]
  - Essential tremor [Recovering/Resolving]

NARRATIVE: CASE EVENT DATE: 20190402
